FAERS Safety Report 22807708 (Version 5)
Quarter: 2024Q1

REPORT INFORMATION
  Report Type: Report from Study
  Country: US (occurrence: US)
  Receive Date: 20230810
  Receipt Date: 20240105
  Transmission Date: 20240410
  Serious: No
  Sender: FDA-Public Use
  Company Number: US-002147023-NVSC2023US174599

PATIENT
  Age: 66 Year
  Sex: Male

DRUGS (1)
  1. PROMACTA [Suspect]
     Active Substance: ELTROMBOPAG OLAMINE
     Indication: Immune thrombocytopenia
     Dosage: 75 MG/KG, QD
     Route: 048
     Dates: end: 20231005

REACTIONS (5)
  - Vision blurred [Unknown]
  - Sneezing [Unknown]
  - Platelet count abnormal [Unknown]
  - Rhinorrhoea [Unknown]
  - Platelet count increased [Recovering/Resolving]

NARRATIVE: CASE EVENT DATE: 20230701
